FAERS Safety Report 7248847-0 (Version None)
Quarter: 2011Q1

REPORT INFORMATION
  Report Type: 
  Country: None (occurrence: None)
  Receive Date: 20110128
  Receipt Date: 20100325
  Transmission Date: 20110831
  Serious: Yes (Other)
  Sender: FDA-Public Use
  Company Number: US-BAYER-201013538NA

PATIENT
  Sex: Female
  Weight: 90.909 kg

DRUGS (17)
  1. YASMIN [Suspect]
     Indication: ORAL CONTRACEPTION
     Route: 048
     Dates: start: 20070118
  2. SPIRONOLACTONE [Concomitant]
     Indication: PRODUCT USED FOR UNKNOWN INDICATION
     Dosage: 125 MG (DAILY DOSE), ,
     Dates: start: 20070301
  3. ORTHO CYCLEN-28 [Concomitant]
     Dates: start: 20070501, end: 20080101
  4. ALEVE [Concomitant]
  5. YAZ [Suspect]
     Indication: ORAL CONTRACEPTION
     Route: 048
     Dates: start: 20070201, end: 20070501
  6. ORTHO CYCLEN-28 [Concomitant]
     Indication: CONTRACEPTION
     Dates: start: 20050401, end: 20051101
  7. TRI-SPRINTEC [Concomitant]
     Indication: CONTRACEPTION
     Dates: start: 20080101, end: 20080601
  8. VICODIN [Concomitant]
     Dosage: 5/500
  9. AMOXICILLIN [Concomitant]
     Indication: PRODUCT USED FOR UNKNOWN INDICATION
     Dates: start: 20070501
  10. GABAPENTIN [Concomitant]
  11. NUVARING [Concomitant]
  12. OCELLA [Suspect]
     Indication: PRODUCT USED FOR UNKNOWN INDICATION
     Route: 048
     Dates: start: 20070201, end: 20070501
  13. NSAID'S [Concomitant]
     Indication: PRODUCT USED FOR UNKNOWN INDICATION
     Dates: start: 20040101, end: 20100101
  14. HYDROCODONE/GUAIFENESIN [Concomitant]
     Indication: PRODUCT USED FOR UNKNOWN INDICATION
     Dosage: 100 - 5 MG
     Dates: start: 20070401
  15. ANTIBIOTICS [Concomitant]
     Indication: PRODUCT USED FOR UNKNOWN INDICATION
     Dates: start: 20040101, end: 20100101
  16. LYRICA [Concomitant]
     Indication: PRODUCT USED FOR UNKNOWN INDICATION
     Dates: start: 20070301
  17. OMEPRAZOLE [Concomitant]
     Dosage: 20 MG (DAILY DOSE), ,

REACTIONS (5)
  - MURPHY'S SIGN POSITIVE [None]
  - ABDOMINAL PAIN UPPER [None]
  - MUSCULOSKELETAL PAIN [None]
  - CHOLECYSTITIS CHRONIC [None]
  - GALLBLADDER CHOLESTEROLOSIS [None]
